FAERS Safety Report 23676481 (Version 1)
Quarter: 2024Q1

REPORT INFORMATION
  Report Type: Spontaneous
  Country: GB (occurrence: GB)
  Receive Date: 20240327
  Receipt Date: 20240327
  Transmission Date: 20240409
  Serious: Yes (Other)
  Sender: FDA-Public Use
  Company Number: None

PATIENT

DRUGS (1)
  1. LAMOTRIGINE [Suspect]
     Active Substance: LAMOTRIGINE
     Indication: Bipolar disorder
     Dosage: 25 MG
     Route: 065
     Dates: start: 20240318, end: 20240318

REACTIONS (1)
  - Multiple allergies [Recovering/Resolving]

NARRATIVE: CASE EVENT DATE: 20240318
